FAERS Safety Report 16395953 (Version 1)
Quarter: 2019Q2

REPORT INFORMATION
  Report Type: Spontaneous
  Country: US (occurrence: US)
  Receive Date: 20190605
  Receipt Date: 20190605
  Transmission Date: 20190711
  Serious: Yes (Hospitalization, Other)
  Sender: FDA-Public Use
  Company Number: US-SAOL THERAPEUTICS-2019SAO00207

PATIENT
  Age: 57 Year
  Sex: Male
  Weight: 86.62 kg

DRUGS (10)
  1. LIORESAL [Suspect]
     Active Substance: BACLOFEN
     Indication: BACK PAIN
     Dosage: 991.4 ?G, \DAY
     Route: 037
  2. FOLIC ACID. [Concomitant]
     Active Substance: FOLIC ACID
  3. GABAPENTIN. [Concomitant]
     Active Substance: GABAPENTIN
  4. LIORESAL [Suspect]
     Active Substance: BACLOFEN
     Indication: MUSCLE SPASMS
     Dosage: 890.4 ?G, \DAY (ALSO REPORTED AS 891.4)
     Route: 037
     Dates: start: 201810, end: 20181101
  5. SERTRALINE [Concomitant]
     Active Substance: SERTRALINE HYDROCHLORIDE
  6. LIORESAL [Suspect]
     Active Substance: BACLOFEN
     Dosage: 356.2 ?G, \DAY
     Route: 037
     Dates: start: 20181112, end: 20181114
  7. ATORVASTATIN [Concomitant]
     Active Substance: ATORVASTATIN
  8. LISINOPRIL. [Concomitant]
     Active Substance: LISINOPRIL
  9. LIORESAL [Suspect]
     Active Substance: BACLOFEN
     Indication: MUSCLE SPASTICITY
     Dosage: 445.2 ?G, \DAY
     Route: 037
     Dates: start: 20181101, end: 20181112
  10. LIORESAL [Suspect]
     Active Substance: BACLOFEN
     Dosage: 288.8 ?G, \DAY
     Route: 037
     Dates: start: 20181114

REACTIONS (39)
  - Unresponsive to stimuli [Recovered/Resolved]
  - Loss of consciousness [Recovered/Resolved]
  - Hypoxic-ischaemic encephalopathy [Recovered/Resolved]
  - Post-traumatic stress disorder [Not Recovered/Not Resolved]
  - Psychiatric symptom [Not Recovered/Not Resolved]
  - Ecchymosis [Recovered/Resolved]
  - Nausea [Recovered/Resolved]
  - Gait disturbance [Unknown]
  - Pneumonia [Recovered/Resolved]
  - Acute respiratory failure [Recovered/Resolved]
  - Device leakage [Recovered/Resolved]
  - Hypertonia [Recovered/Resolved]
  - Anxiety [Not Recovered/Not Resolved]
  - Disorientation [Recovered/Resolved]
  - Musculoskeletal pain [Unknown]
  - Toxicity to various agents [Recovered/Resolved]
  - Therapeutic product effect decreased [Recovered/Resolved]
  - Overdose [Recovered/Resolved]
  - Cognitive disorder [Not Recovered/Not Resolved]
  - Confusional state [Not Recovered/Not Resolved]
  - Injury [Recovered/Resolved]
  - Aggression [Recovered/Resolved]
  - Aspiration [Recovered/Resolved]
  - Memory impairment [Not Recovered/Not Resolved]
  - Drug titration error [Recovered/Resolved]
  - Erythema [Recovered/Resolved]
  - Agitation [Recovered/Resolved]
  - Urinary incontinence [Recovered/Resolved]
  - Rhabdomyolysis [Recovered/Resolved]
  - Amnesia [Not Recovered/Not Resolved]
  - Nightmare [Not Recovered/Not Resolved]
  - Device infusion issue [Recovered/Resolved]
  - Visual impairment [Not Recovered/Not Resolved]
  - Hypertension [Recovered/Resolved]
  - Mental status changes [Recovered/Resolved]
  - Depression [Not Recovered/Not Resolved]
  - Tachycardia [Recovered/Resolved]
  - Pain [Recovered/Resolved]
  - Asthenia [Unknown]

NARRATIVE: CASE EVENT DATE: 201801
